FAERS Safety Report 23240706 (Version 19)
Quarter: 2024Q4

REPORT INFORMATION
  Report Type: Spontaneous
  Country: US (occurrence: US)
  Receive Date: 20231129
  Receipt Date: 20241223
  Transmission Date: 20250115
  Serious: Yes (Disabling, Other)
  Sender: AMGEN
  Company Number: US-HORIZON THERAPEUTICS-HZN-2023-009683

PATIENT
  Age: 41 Year
  Sex: Female
  Weight: 79 kg

DRUGS (50)
  1. TEPEZZA [Suspect]
     Active Substance: TEPROTUMUMAB-TRBW
     Indication: Endocrine ophthalmopathy
     Dosage: 786 MILLIGRAM, Q3WK (FIRST INFUSION)
     Route: 042
     Dates: start: 20220411
  2. TEPEZZA [Suspect]
     Active Substance: TEPROTUMUMAB-TRBW
     Indication: Graves^ disease
     Dosage: 1572 MILLIGRAM, Q3WK (SECOND INFUSION)
     Route: 042
     Dates: start: 20220502
  3. TEPEZZA [Suspect]
     Active Substance: TEPROTUMUMAB-TRBW
     Dosage: 1572 MILLIGRAM, Q3WK (THIRD INFUSION)
     Route: 042
     Dates: start: 20220523
  4. TEPEZZA [Suspect]
     Active Substance: TEPROTUMUMAB-TRBW
     Dosage: 1572 MILLIGRAM, Q3WK (FOURTH INFUSION)
     Route: 042
     Dates: start: 20220627
  5. TEPEZZA [Suspect]
     Active Substance: TEPROTUMUMAB-TRBW
     Dosage: 1572 MILLIGRAM, Q3WK  (FIFTH INFUSION)
     Route: 042
     Dates: start: 20220718
  6. TEPEZZA [Suspect]
     Active Substance: TEPROTUMUMAB-TRBW
     Dosage: 1572 MILLIGRAM, Q3WK (SIXTH INFUSION)
     Route: 042
     Dates: start: 20220808
  7. TEPEZZA [Suspect]
     Active Substance: TEPROTUMUMAB-TRBW
     Dosage: 1572 MILLIGRAM, Q3WK (SEVENTH INFUSION)
     Route: 042
     Dates: start: 20220829
  8. TEPEZZA [Suspect]
     Active Substance: TEPROTUMUMAB-TRBW
     Dosage: 1572 MILLIGRAM, Q3WK (EIGHTH INFUSION)
     Route: 042
     Dates: start: 20220919, end: 20220919
  9. PREDNISONE [Suspect]
     Active Substance: PREDNISONE
     Indication: Exophthalmos
     Dosage: 10 MILLIGRAM, QD
     Route: 048
  10. WELLBUTRIN XL [Concomitant]
     Active Substance: BUPROPION HYDROCHLORIDE
     Dosage: UNK, QD
     Route: 048
  11. CICLOPIROX [Concomitant]
     Active Substance: CICLOPIROX
     Dosage: UNK, QD(8 % SOLUTION 1 APPLICATION)
     Route: 065
     Dates: end: 20220816
  12. IBUPROFEN [Concomitant]
     Active Substance: IBUPROFEN
     Dosage: UNK, Q8H
     Route: 048
  13. CHLORHEXIDINE GLUCONATE AL [Concomitant]
     Dosage: UNK
     Route: 065
  14. HYDROCODONE BITARTRATE AND ACETAMINOPHEN [Concomitant]
     Active Substance: ACETAMINOPHEN\HYDROCODONE BITARTRATE
     Indication: Pain
     Dosage: UNK, EVERY 4-6 HOURS
     Route: 048
  15. AMOXICILLIN [Concomitant]
     Active Substance: AMOXICILLIN
     Dosage: UNK, Q8H
     Route: 048
  16. LEVOTHYROXINE SODIUM [Concomitant]
     Active Substance: LEVOTHYROXINE SODIUM
     Indication: Hypothyroidism
     Dosage: 125 MICROGRAM, QD (EVERY DAY IN THE MORNING ON AN EMPTY STOMACH)
     Route: 048
  17. CANNABIS SATIVA SUBSP. INDICA TOP [Concomitant]
     Active Substance: CANNABIS SATIVA SUBSP. INDICA TOP
     Dosage: UNK
     Route: 065
  18. PROGESTERONE [Concomitant]
     Active Substance: PROGESTERONE
     Dosage: 200 MILLIGRAM
     Route: 048
  19. TYLENOL 8HR [Concomitant]
     Active Substance: ACETAMINOPHEN
     Indication: Arthritis
     Dosage: 650 MILLIGRAM, Q8H
     Route: 048
  20. SYNTHROID [Concomitant]
     Active Substance: LEVOTHYROXINE SODIUM
     Dosage: 125 MICROGRAM
     Route: 065
  21. REFRESH P.M. [Concomitant]
     Active Substance: MINERAL OIL\PETROLATUM
     Dosage: UNK
     Route: 047
  22. VITAMIN B COMPLEX [Concomitant]
     Active Substance: CYANOCOBALAMIN\DEXPANTHENOL\NIACINAMIDE\PYRIDOXINE HYDROCHLORIDE\RIBOFLAVIN 5^-PHOSPHATE SODIUM\THIA
     Dosage: UNK, QD
     Route: 048
     Dates: start: 20140114
  23. MELATONIN [Concomitant]
     Active Substance: MELATONIN
     Dosage: UNK, QHS
     Route: 048
     Dates: start: 20131014
  24. VITAMINS [Concomitant]
     Active Substance: VITAMINS
     Dosage: UNK
     Route: 065
     Dates: start: 20130918
  25. COLON HEALTH [Concomitant]
     Dosage: UNK, QD
     Route: 048
  26. STOOL SOFTENER (DOCUSATE) [Concomitant]
     Active Substance: DOCUSATE
     Dosage: UNK, QD
     Route: 048
  27. CALCIUM\MAGNESIUM\VITAMIN D\ZINC [Concomitant]
     Active Substance: CALCIUM\MAGNESIUM\VITAMIN D\ZINC
     Dosage: UNK, QD
     Route: 048
  28. INDERAL [Concomitant]
     Active Substance: PROPRANOLOL HYDROCHLORIDE
     Dosage: 40 MILLIGRAM, BID
     Route: 048
  29. Artificial tears [Concomitant]
     Dosage: UNK, QID
     Route: 047
  30. METHIMAZOLE [Concomitant]
     Active Substance: METHIMAZOLE
     Dosage: UNK, QD
     Route: 048
  31. TRIAMCINOLONE ACETONIDE [Concomitant]
     Active Substance: TRIAMCINOLONE ACETONIDE
     Dosage: 40 MILLIGRAM PER MILLILITRE
     Route: 065
  32. LIDOCAINE [Concomitant]
     Active Substance: LIDOCAINE
     Dosage: 20 MILLIGRAM PER MILLILITRE
     Route: 065
  33. BUPIVACAINE HYDROCHLORIDE [Concomitant]
     Active Substance: BUPIVACAINE HYDROCHLORIDE
     Dosage: 5 MILLIGRAM PER MILLILITRE
     Route: 065
  34. ALCOHOL [Concomitant]
     Active Substance: ALCOHOL
     Dosage: UNK
     Route: 065
  35. BETADINE [Concomitant]
     Active Substance: POVIDONE-IODINE
     Dosage: UNK
     Route: 065
  36. AZITHROMYCIN [Concomitant]
     Active Substance: AZITHROMYCIN
     Dosage: 250 MILLIGRAM
     Route: 048
  37. CYTOMEL [Concomitant]
     Active Substance: LIOTHYRONINE SODIUM
     Dosage: UNK
     Route: 065
  38. INFLUENZA VIRUS VACCINE [Concomitant]
     Active Substance: INFLUENZA VIRUS VACCINE
     Dosage: UNK
     Route: 065
     Dates: start: 20130110
  39. INFLUENZA VIRUS VACCINE [Concomitant]
     Active Substance: INFLUENZA VIRUS VACCINE
     Dosage: UNK
     Route: 065
     Dates: start: 20131223
  40. INFLUENZA VIRUS VACCINE [Concomitant]
     Active Substance: INFLUENZA VIRUS VACCINE
     Dosage: UNK
     Route: 065
     Dates: start: 20141122
  41. INFLUENZA VIRUS VACCINE [Concomitant]
     Active Substance: INFLUENZA VIRUS VACCINE
     Dosage: UNK
     Route: 065
     Dates: start: 20151001
  42. MEDROL [Concomitant]
     Active Substance: METHYLPREDNISOLONE
     Dosage: UNK
     Route: 065
  43. FLONASE [Concomitant]
     Active Substance: FLUTICASONE PROPIONATE
     Dosage: 50 MICROGRAM
     Route: 065
  44. DOXYCYCLINE HYCLATE [Concomitant]
     Active Substance: DOXYCYCLINE HYCLATE
     Dosage: 100 MILLIGRAM
     Route: 065
  45. CITRUCEL [Concomitant]
     Active Substance: METHYLCELLULOSE (4000 CPS)
     Dosage: UNK
     Route: 065
  46. BUPROPION HYDROCHLORIDE [Concomitant]
     Active Substance: BUPROPION HYDROCHLORIDE
     Dosage: 150 MILLIGRAM, QD (MORNING)
     Route: 048
  47. CRESTOR [Concomitant]
     Active Substance: ROSUVASTATIN CALCIUM
     Dosage: 10 MILLIGRAM, QD
     Route: 048
  48. VITAMIN D [Concomitant]
     Active Substance: VITAMIN D NOS
     Dosage: 50 MICROGRAM, QD (2000 UT), 1 CAPSULE)
     Route: 048
  49. BOOSTRIX [Concomitant]
     Active Substance: TETANUS TOXOID, REDUCED DIPHTHERIA TOXOID AND ACELLULAR PERTUSSIS VACCINE, ADSORBED ANTIGENS
     Indication: Immunisation
     Dosage: 0.5 MILLILITER
     Route: 030
  50. TAPAZOLE [Concomitant]
     Active Substance: METHIMAZOLE
     Dosage: UNK
     Route: 065

REACTIONS (82)
  - Endocrine ophthalmopathy [Not Recovered/Not Resolved]
  - Deafness neurosensory [Recovering/Resolving]
  - Ototoxicity [Unknown]
  - Bipolar disorder [Unknown]
  - Anxiety [Not Recovered/Not Resolved]
  - Emotional distress [Not Recovered/Not Resolved]
  - Irritability [Unknown]
  - Dyspnoea [Unknown]
  - Depressed mood [Unknown]
  - Weight increased [Unknown]
  - Inappropriate schedule of product administration [Unknown]
  - Insomnia [Unknown]
  - Oral disorder [Unknown]
  - Myalgia [Unknown]
  - Onychomycosis [Unknown]
  - Ocular hyperaemia [Unknown]
  - Eye irritation [Unknown]
  - Coccydynia [Unknown]
  - Blood cholesterol increased [Unknown]
  - Low density lipoprotein increased [Unknown]
  - Blood triglycerides increased [Unknown]
  - Impaired fasting glucose [Unknown]
  - Blood albumin increased [Unknown]
  - Vitamin D decreased [Unknown]
  - Blood potassium increased [Unknown]
  - Mean cell volume increased [Unknown]
  - Neutrophil count increased [Unknown]
  - Granulocyte count increased [Unknown]
  - Osteoarthritis [Unknown]
  - Rotator cuff syndrome [Unknown]
  - Bursitis [Unknown]
  - Obesity [Unknown]
  - Joint noise [Unknown]
  - Gingivitis [Unknown]
  - Blood thyroid stimulating hormone decreased [Unknown]
  - Thyroxine free increased [Unknown]
  - Tri-iodothyronine increased [Unknown]
  - Palpitations [Unknown]
  - Device physical property issue [Unknown]
  - Hypertension [Unknown]
  - Dermatitis atopic [Unknown]
  - Cough [Unknown]
  - Otitis media [Unknown]
  - Nasal congestion [Unknown]
  - Neck pain [Unknown]
  - Blood alkaline phosphatase decreased [Unknown]
  - High density lipoprotein decreased [Unknown]
  - Dermatitis contact [Unknown]
  - Carbon dioxide decreased [Unknown]
  - Very low density lipoprotein increased [Unknown]
  - Plantar fascial fibromatosis [Unknown]
  - Blood urea nitrogen/creatinine ratio increased [Unknown]
  - Monocyte count increased [Unknown]
  - White blood cell count increased [Unknown]
  - Red blood cell count decreased [Unknown]
  - Tinnitus [Not Recovered/Not Resolved]
  - Weight decreased [Unknown]
  - Blood glucose increased [Unknown]
  - Autophony [Unknown]
  - Hyperacusis [Unknown]
  - Glycosylated haemoglobin increased [Unknown]
  - Headache [Unknown]
  - Fatigue [Unknown]
  - Diarrhoea [Unknown]
  - Nausea [Unknown]
  - Blood chloride increased [Unknown]
  - Dental caries [Unknown]
  - Bruxism [Unknown]
  - Grief reaction [Unknown]
  - Proctalgia [Unknown]
  - Paraesthesia [Unknown]
  - Pain [Unknown]
  - Kyphosis [Unknown]
  - Joint stiffness [Unknown]
  - Musculoskeletal stiffness [Unknown]
  - Rib deformity [Unknown]
  - Muscular weakness [Unknown]
  - Blood sodium increased [Unknown]
  - Temperature intolerance [Unknown]
  - Hot flush [Unknown]
  - Therapy non-responder [Unknown]
  - Blepharitis [Unknown]

NARRATIVE: CASE EVENT DATE: 20130801
